FAERS Safety Report 9956280 (Version 1)
Quarter: 2014Q1

REPORT INFORMATION
  Report Type: Report from Study
  Country: US (occurrence: US)
  Receive Date: 20140304
  Receipt Date: 20140304
  Transmission Date: 20141002
  Serious: No
  Sender: FDA-Public Use
  Company Number: US-ABBVIE-13P-163-1085060-00

PATIENT
  Sex: Female
  Weight: 102.15 kg

DRUGS (12)
  1. HUMIRA [Suspect]
     Indication: RHEUMATOID ARTHRITIS
     Dates: start: 201111
  2. FEXOFENADINE [Concomitant]
     Indication: PRODUCT USED FOR UNKNOWN INDICATION
  3. FUROSEMIDE [Concomitant]
     Indication: UNEVALUABLE EVENT
  4. OMEPRAZOLE [Concomitant]
     Indication: GASTROOESOPHAGEAL REFLUX DISEASE
  5. FOLIC ACID [Concomitant]
     Indication: VITAMIN SUPPLEMENTATION
  6. HYDROXYCHLOROQUINE [Concomitant]
     Indication: PRODUCT USED FOR UNKNOWN INDICATION
  7. ETODOLAC [Concomitant]
     Indication: RHEUMATOID ARTHRITIS
  8. METHOTREXATE [Concomitant]
     Indication: RHEUMATOID ARTHRITIS
  9. METFORMIN [Concomitant]
     Indication: DIABETES MELLITUS
  10. DICYCLOMINE [Concomitant]
     Indication: IRRITABLE BOWEL SYNDROME
  11. TRAMADOL [Concomitant]
     Indication: PAIN
  12. BENICAR HCT [Concomitant]
     Indication: HYPERTENSION

REACTIONS (1)
  - Paraesthesia [Not Recovered/Not Resolved]
